FAERS Safety Report 6185618-0 (Version None)
Quarter: 2009Q2

REPORT INFORMATION
  Report Type: 
  Country: None (occurrence: None)
  Receive Date: 20090511
  Receipt Date: 20090429
  Transmission Date: 20091009
  Serious: Yes (Other)
  Sender: FDA-Public Use
  Company Number: US-PFIZER INC-2009209359

PATIENT
  Sex: Female

DRUGS (2)
  1. CHANTIX [Suspect]
     Indication: SMOKING CESSATION THERAPY
     Dosage: UNK
     Dates: start: 20080101, end: 20090427
  2. DRUG, UNSPECIFIED [Concomitant]
     Dosage: UNK

REACTIONS (3)
  - ANGER [None]
  - DEPRESSION [None]
  - SUICIDAL IDEATION [None]
